FAERS Safety Report 9983937 (Version 2)
Quarter: 2014Q1

REPORT INFORMATION
  Report Type: Report from Study
  Country: PR (occurrence: PR)
  Receive Date: 20140307
  Receipt Date: 20140307
  Transmission Date: 20141002
  Serious: Yes (Hospitalization)
  Sender: FDA-Public Use
  Company Number: PR-ABBVIE-13P-131-1169712-00

PATIENT
  Sex: Male
  Weight: 75.36 kg

DRUGS (10)
  1. HUMIRA [Suspect]
     Indication: PRODUCT USED FOR UNKNOWN INDICATION
     Route: 058
     Dates: start: 201308
  2. HUMIRA [Suspect]
     Route: 058
     Dates: start: 201311
  3. LUPRON [Concomitant]
     Indication: PROSTATE CANCER
     Route: 050
  4. NORVASC [Concomitant]
     Indication: HYPERTENSION
     Route: 048
  5. VASOTEC [Concomitant]
     Indication: HYPERTENSION
     Route: 048
  6. CELEBREX [Concomitant]
     Indication: RHEUMATOID ARTHRITIS
     Route: 048
  7. METHOTREXATE [Concomitant]
     Indication: RHEUMATOID ARTHRITIS
     Route: 048
  8. FOLIC ACID [Concomitant]
     Indication: RHEUMATOID ARTHRITIS
     Route: 048
  9. PLAQUENIL [Concomitant]
     Indication: RHEUMATOID ARTHRITIS
     Route: 048
  10. ZANTAC [Concomitant]
     Indication: GASTRIC DISORDER
     Route: 048

REACTIONS (1)
  - Diverticulitis [Recovered/Resolved]
